FAERS Safety Report 6636483-6 (Version None)
Quarter: 2010Q1

REPORT INFORMATION
  Report Type: 
  Country: None (occurrence: None)
  Receive Date: 20100316
  Receipt Date: 20100305
  Transmission Date: 20100710
  Serious: Yes (Other)
  Sender: FDA-Public Use
  Company Number: JP-PFIZER INC-2010030311

PATIENT
  Age: 75 Year
  Sex: Male

DRUGS (10)
  1. XALATAN [Suspect]
     Indication: NORMAL TENSION GLAUCOMA
     Dosage: AT BEDTIME DAILY IN LEFT EYE
     Route: 047
     Dates: start: 20091001, end: 20091101
  2. FLIVAS [Concomitant]
     Dosage: UNK
  3. NIFEDIPINE [Concomitant]
     Dosage: UNK
  4. ASPIRIN [Concomitant]
     Dosage: UNK
  5. TEPRENONE [Concomitant]
     Dosage: UNK
  6. TOWARAT [Concomitant]
     Dosage: UNK
  7. BISOPROLOL FUMARATE [Concomitant]
     Dosage: UNK
  8. TICLOPIDINE HYDROCHLORIDE [Concomitant]
     Dosage: UNK
  9. CRESTOR [Concomitant]
     Dosage: UNK
  10. METHYL SALICYLATE [Concomitant]
     Dosage: UNK

REACTIONS (2)
  - CORNEAL DISORDER [None]
  - VISUAL ACUITY REDUCED [None]
